FAERS Safety Report 20898745 (Version 6)
Quarter: 2023Q1

REPORT INFORMATION
  Report Type: Report from Study
  Country: UA (occurrence: UA)
  Receive Date: 20220601
  Receipt Date: 20230331
  Transmission Date: 20230417
  Serious: No
  Sender: FDA-Public Use
  Company Number: UA-BRISTOL-MYERS SQUIBB COMPANY-2022-045293

PATIENT
  Age: 1 Day
  Weight: 3.290 kg

DRUGS (1)
  1. KANAVIT [PHYTOMENADIONE] [Concomitant]
     Indication: Product used for unknown indication
     Dosage: 0.1 ML, I/M
     Route: 064

REACTIONS (3)
  - Foetal exposure during pregnancy [Unknown]
  - Jaundice neonatal [Unknown]
  - Cephalhaematoma [Unknown]

NARRATIVE: CASE EVENT DATE: 20230114
